FAERS Safety Report 13616131 (Version 1)
Quarter: 2017Q2

REPORT INFORMATION
  Report Type: Spontaneous
  Country: US (occurrence: US)
  Receive Date: 20170605
  Receipt Date: 20170605
  Transmission Date: 20170830
  Serious: Yes (Hospitalization)
  Sender: FDA-Public Use
  Company Number: None

PATIENT
  Age: 69 Year
  Sex: Male
  Weight: 68.95 kg

DRUGS (1)
  1. CLOZARIL [Suspect]
     Active Substance: CLOZAPINE
     Indication: BIPOLAR I DISORDER
     Route: 048
     Dates: start: 20110308, end: 20110313

REACTIONS (4)
  - Constipation [None]
  - Sedation [None]
  - Restlessness [None]
  - Amnesia [None]

NARRATIVE: CASE EVENT DATE: 20110308
